FAERS Safety Report 9285680 (Version 2)
Quarter: 2013Q3

REPORT INFORMATION
  Report Type: Spontaneous
  Country: US (occurrence: US)
  Receive Date: 20130513
  Receipt Date: 20130801
  Transmission Date: 20140515
  Serious: Yes (Death, Hospitalization)
  Sender: FDA-Public Use
  Company Number: US-B.I. PHARMACEUTICALS,INC./RIDGEFIELD-2013-BI-13195BP

PATIENT
  Age: 82 Year
  Sex: Male
  Weight: 63.5 kg

DRUGS (6)
  1. PRADAXA [Suspect]
     Indication: ANTICOAGULANT THERAPY
     Dates: start: 20110526, end: 20110722
  2. AMIODARONE [Concomitant]
     Dosage: 200 MG
     Route: 048
  3. ASPIRIN [Concomitant]
     Dosage: 81 MG
     Route: 048
  4. SYNTHROID [Concomitant]
     Dosage: 75 MCG
     Route: 048
  5. METOPROLOL [Concomitant]
     Dosage: 25 MG
     Route: 048
  6. SIMVASTATIN [Concomitant]
     Dosage: 40 MG
     Route: 048

REACTIONS (3)
  - Lower gastrointestinal haemorrhage [Fatal]
  - Anaemia [Unknown]
  - Coagulopathy [Unknown]
